FAERS Safety Report 6107727-4 (Version None)
Quarter: 2009Q1

REPORT INFORMATION
  Report Type: 
  Country: None (occurrence: None)
  Receive Date: 20090309
  Receipt Date: 20090227
  Transmission Date: 20090719
  Serious: Yes (Death, Hospitalization)
  Sender: FDA-Public Use
  Company Number: A0753952A

PATIENT
  Age: 61 Year
  Sex: Male

DRUGS (3)
  1. AVANDIA [Suspect]
     Dosage: 4MG PER DAY
     Route: 048
     Dates: start: 20000501, end: 20050105
  2. CARTIA XT [Concomitant]
  3. GLUCOPHAGE [Concomitant]
     Dosage: 500MG TWICE PER DAY
     Dates: start: 20000405, end: 20010227

REACTIONS (2)
  - CARDIO-RESPIRATORY ARREST [None]
  - MYOCARDIAL INFARCTION [None]
